FAERS Safety Report 5486585-5 (Version None)
Quarter: 2007Q4

REPORT INFORMATION
  Report Type: 
  Country: None (occurrence: None)
  Receive Date: 20071012
  Receipt Date: 20071001
  Transmission Date: 20080405
  Serious: Yes (Life-Threatening, Other)
  Sender: FDA-Public Use
  Company Number: US021000

PATIENT
  Age: 34 Year
  Sex: Female
  Weight: 86.1834 kg

DRUGS (6)
  1. FENTORA [Suspect]
     Indication: BREAKTHROUGH PAIN
     Dosage: 600 UG PRN BUCCAL
     Route: 002
     Dates: start: 20070305
  2. FENTORA [Suspect]
     Indication: MIGRAINE
     Dosage: 600 UG PRN BUCCAL
     Route: 002
     Dates: start: 20070305
  3. FENTORA [Suspect]
     Indication: PAIN
     Dosage: 600 UG PRN BUCCAL
     Route: 002
     Dates: start: 20070305
  4. OXYCODONE HCL [Concomitant]
  5. LORTAB [Concomitant]
  6. FENTANYL [Concomitant]

REACTIONS (4)
  - DEPRESSED MOOD [None]
  - LOSS OF CONSCIOUSNESS [None]
  - PHARMACEUTICAL PRODUCT COMPLAINT [None]
  - RESPIRATORY ARREST [None]
